FAERS Safety Report 18492021 (Version 1)
Quarter: 2020Q4

REPORT INFORMATION
  Report Type: Spontaneous
  Country: US (occurrence: US)
  Receive Date: 20201111
  Receipt Date: 20201111
  Transmission Date: 20210114
  Serious: Yes (Other)
  Sender: FDA-Public Use
  Company Number: US-BAYER-2020-243812

PATIENT
  Age: 88 Year
  Sex: Female

DRUGS (2)
  1. FLUID [Suspect]
     Active Substance: UNSPECIFIED INGREDIENT
  2. ACETYLSALICYLIC ACID [Suspect]
     Active Substance: ASPIRIN

REACTIONS (1)
  - Haemothorax [None]
